FAERS Safety Report 5116988-X (Version None)
Quarter: 2006Q3

REPORT INFORMATION
  Report Type: 
  Country: None (occurrence: None)
  Receive Date: 20060928
  Receipt Date: 20060922
  Transmission Date: 20061208
  Serious: Yes (Other)
  Sender: FDA-Public Use
  Company Number: GB-MERCK-0609GBR00116

PATIENT
  Age: 41 Year
  Sex: Female
  Weight: 81 kg

DRUGS (3)
  1. SINGULAIR [Suspect]
     Indication: ASTHMA
     Route: 048
     Dates: start: 20060518, end: 20060529
  2. SEREVENT [Concomitant]
     Indication: ASTHMA
     Route: 055
     Dates: start: 20051101
  3. VENTOLIN [Concomitant]
     Indication: ASTHMA
     Route: 055
     Dates: start: 20031201

REACTIONS (4)
  - ASTHMA [None]
  - CHEST DISCOMFORT [None]
  - HYPOAESTHESIA [None]
  - PARAESTHESIA [None]
